FAERS Safety Report 8620550-1 (Version None)
Quarter: 2012Q3

REPORT INFORMATION
  Report Type: 
  Country: None (occurrence: None)
  Receive Date: 20120824
  Receipt Date: 20120816
  Transmission Date: 20120928
  Serious: Yes (Hospitalization)
  Sender: FDA-Public Use
  Company Number: HU-BAXTER-2012BAX014629

PATIENT
  Sex: Female

DRUGS (2)
  1. DIANEAL [Suspect]
     Route: 033
     Dates: start: 20120717
  2. DIANEAL [Suspect]
     Route: 033
     Dates: start: 20120717

REACTIONS (3)
  - PERITONEAL CLOUDY EFFLUENT [None]
  - ABDOMINAL TENDERNESS [None]
  - ABDOMINAL DISCOMFORT [None]
